FAERS Safety Report 18411616 (Version 1)
Quarter: 2020Q4

REPORT INFORMATION
  Report Type: Spontaneous
  Country: AU (occurrence: AU)
  Receive Date: 20201021
  Receipt Date: 20201021
  Transmission Date: 20210114
  Serious: Yes (Other)
  Sender: FDA-Public Use
  Company Number: AU-ANIPHARMA-2020-AU-000243

PATIENT
  Age: 80 Year
  Sex: Female

DRUGS (6)
  1. ATORVASTATIN [Suspect]
     Active Substance: ATORVASTATIN
     Dosage: 40 MG QD
     Route: 065
  2. LERCANIDIPINE [Suspect]
     Active Substance: LERCANIDIPINE
     Dosage: 10 MG QD
     Route: 065
  3. METFORMIN [Suspect]
     Active Substance: METFORMIN HYDROCHLORIDE
     Dosage: 500 MG EVERY DAY
     Route: 065
  4. CANDESARTAN. [Suspect]
     Active Substance: CANDESARTAN
     Indication: PRODUCT USED FOR UNKNOWN INDICATION
     Dosage: 16 MG QD
     Route: 048
  5. ATENOLOL. [Suspect]
     Active Substance: ATENOLOL
     Dosage: 50 MG QD
     Route: 048
  6. WARFARIN [Suspect]
     Active Substance: WARFARIN
     Dosage: 3 MG QD
     Route: 065

REACTIONS (1)
  - Lung neoplasm malignant [Unknown]
